FAERS Safety Report 12579250 (Version 1)
Quarter: 2016Q3

REPORT INFORMATION
  Report Type: Spontaneous
  Country: DE (occurrence: DE)
  Receive Date: 20160721
  Receipt Date: 20160721
  Transmission Date: 20161109
  Serious: Yes (Other)
  Sender: FDA-Public Use
  Company Number: DE-BAYER-2016-137404

PATIENT
  Age: 42 Year
  Sex: Male

DRUGS (2)
  1. SORAFENIB (RAF KINASE INHIBITOR) [Suspect]
     Active Substance: SORAFENIB
     Indication: ANAPLASTIC THYROID CANCER
     Dosage: 400 MG, QD
     Dates: start: 2013, end: 2013
  2. SORAFENIB (RAF KINASE INHIBITOR) [Suspect]
     Active Substance: SORAFENIB
     Indication: ANAPLASTIC THYROID CANCER
     Dosage: 400 MG, BID
     Route: 048
     Dates: start: 201301, end: 2013

REACTIONS (3)
  - Musculoskeletal pain [None]
  - Off label use [None]
  - Polyneuropathy [None]

NARRATIVE: CASE EVENT DATE: 2013
